FAERS Safety Report 17113597 (Version 2)
Quarter: 2019Q4

REPORT INFORMATION
  Report Type: Spontaneous
  Country: JP (occurrence: JP)
  Receive Date: 20191205
  Receipt Date: 20191217
  Transmission Date: 20200122
  Serious: Yes (Other)
  Sender: FDA-Public Use
  Company Number: JP-ROCHE-2489591

PATIENT
  Age: 77 Year
  Sex: Male
  Weight: 54 kg

DRUGS (1)
  1. TECENTRIQ [Suspect]
     Active Substance: ATEZOLIZUMAB
     Indication: NON-SMALL CELL LUNG CANCER
     Route: 041
     Dates: start: 20181206, end: 20191030

REACTIONS (1)
  - Skin disorder [Recovered/Resolved]

NARRATIVE: CASE EVENT DATE: 20191121
